FAERS Safety Report 19024243 (Version 2)
Quarter: 2021Q2

REPORT INFORMATION
  Report Type: Spontaneous
  Country: JP (occurrence: JP)
  Receive Date: 20210318
  Receipt Date: 20210428
  Transmission Date: 20210717
  Serious: Yes (Other)
  Sender: FDA-Public Use
  Company Number: NVSJ2021JP004015

PATIENT
  Age: 53 Year
  Sex: Male

DRUGS (1)
  1. BEOVU [Suspect]
     Active Substance: BROLUCIZUMAB-DBLL
     Indication: AGE-RELATED MACULAR DEGENERATION
     Dosage: 6 MG
     Route: 031
     Dates: start: 20201203, end: 20201203

REACTIONS (6)
  - Visual acuity reduced [Unknown]
  - Eye pain [Unknown]
  - Ciliary hyperaemia [Unknown]
  - Retinal vasculitis [Unknown]
  - Vascular occlusion [Unknown]
  - Uveitis [Unknown]

NARRATIVE: CASE EVENT DATE: 202012
